FAERS Safety Report 7636903-4 (Version None)
Quarter: 2011Q3

REPORT INFORMATION
  Report Type: 
  Country: None (occurrence: None)
  Receive Date: 20110722
  Receipt Date: 20110722
  Transmission Date: 20111222
  Serious: No
  Sender: FDA-Public Use
  Company Number: None

PATIENT
  Age: 67 Year
  Sex: Female
  Weight: 68.9467 kg

DRUGS (2)
  1. CEPHALEXIN [Suspect]
     Indication: LOCALISED INFECTION
     Dosage: 500 MG 3X DAILY  FOUR 7 DAYS
     Dates: start: 20110701
  2. CEPHALEXIN [Suspect]
     Indication: LOCALISED INFECTION
     Dosage: 500 MG 3X DAILY  FOUR 7 DAYS
     Dates: start: 20110703

REACTIONS (3)
  - ORAL CANDIDIASIS [None]
  - STOMATITIS [None]
  - TONGUE DISCOLOURATION [None]
